FAERS Safety Report 14953593 (Version 1)
Quarter: 2018Q2

REPORT INFORMATION
  Report Type: Spontaneous
  Country: US (occurrence: US)
  Receive Date: 20180530
  Receipt Date: 20180530
  Transmission Date: 20180711
  Serious: Yes (Death, Other)
  Sender: FDA-Public Use
  Company Number: US-ENDO PHARMACEUTICALS INC-2018-037858

PATIENT
  Age: 66 Year
  Sex: Male

DRUGS (2)
  1. PERCOCET [Suspect]
     Active Substance: ACETAMINOPHEN\OXYCODONE HYDROCHLORIDE
     Indication: OFF LABEL USE
     Dosage: BID FOR SEVERAL YEARS
  2. MORPHINE SULFATE ER 15MG [Suspect]
     Active Substance: MORPHINE SULFATE
     Indication: OFF LABEL USE
     Dosage: EVERY 8 HOURS, SEVERAL YEARS

REACTIONS (2)
  - Substance use [Fatal]
  - Product use in unapproved indication [Unknown]
